FAERS Safety Report 8303694-3 (Version None)
Quarter: 2012Q2

REPORT INFORMATION
  Report Type: 
  Country: None (occurrence: None)
  Receive Date: 20120423
  Receipt Date: 20120409
  Transmission Date: 20120825
  Serious: Yes (Death)
  Sender: FDA-Public Use
  Company Number: US-SANOFI-AVENTIS-2012SA024790

PATIENT
  Age: 3 Year
  Sex: Female
  Weight: 10 kg

DRUGS (5)
  1. SILDENAFIL CITRATE [Concomitant]
  2. ASPIRIN [Concomitant]
  3. PRIMACOR [Suspect]
  4. REMODULIN [Suspect]
     Route: 042
     Dates: start: 20090724, end: 20120401
  5. DIURETICS [Concomitant]

REACTIONS (1)
  - DEATH [None]
